FAERS Safety Report 9331610 (Version 3)
Quarter: 2013Q3

REPORT INFORMATION
  Report Type: Spontaneous
  Country: DK (occurrence: DK)
  Receive Date: 20130605
  Receipt Date: 20130715
  Transmission Date: 20140515
  Serious: Yes (Other)
  Sender: FDA-Public Use
  Company Number: DK-NICOBRDEVP-2013-10031

PATIENT
  Sex: Female

DRUGS (14)
  1. VINORELBINE (UNKNOWN) [Suspect]
     Indication: BREAST CANCER
     Route: 065
  2. EPIRUBICIN HYDROCHLORIDE (UNKNOWN) [Suspect]
     Indication: BREAST CANCER
  3. DOCETAXEL (UNKNOWN) [Suspect]
     Indication: BREAST CANCER
  4. GEMCITABINE (UNKNOWN) [Suspect]
     Indication: BREAST CANCER
  5. PACLITAXEL (UNKNOWN) [Suspect]
     Indication: BREAST CANCER
  6. LETROZOLE (UNKNOWN) [Suspect]
     Indication: BREAST CANCER
  7. HERCEPTIN [Suspect]
     Indication: BREAST CANCER
     Dosage: UNK
     Route: 065
     Dates: start: 20050307, end: 200512
  8. HERCEPTIN [Suspect]
     Dosage: UNK
     Dates: start: 20130429
  9. XELODA [Suspect]
     Indication: BREAST CANCER
     Route: 065
  10. LAPATINIB [Suspect]
     Indication: BREAST CANCER
     Route: 065
  11. ZOLADEX /00732101/ [Suspect]
     Indication: BREAST CANCER
     Route: 065
  12. TAMOXIFEN [Concomitant]
     Indication: PRODUCT USED FOR UNKNOWN INDICATION
     Dosage: UNK
     Route: 065
  13. PANTOPRAZOLE [Concomitant]
     Indication: PRODUCT USED FOR UNKNOWN INDICATION
     Dosage: UNK
     Route: 065
     Dates: start: 20121221
  14. CONTALGIN [Concomitant]
     Indication: PRODUCT USED FOR UNKNOWN INDICATION
     Dosage: UNK
     Route: 065
     Dates: start: 20130605

REACTIONS (3)
  - Disease progression [Unknown]
  - Pleural effusion [Unknown]
  - Pericarditis [Unknown]
